FAERS Safety Report 4923643-5 (Version None)
Quarter: 2006Q1

REPORT INFORMATION
  Report Type: 
  Country: None (occurrence: None)
  Receive Date: 20060127
  Receipt Date: 20051126
  Transmission Date: 20060701
  Serious: Yes (Other)
  Sender: FDA-Public Use
  Company Number: 2005145942

PATIENT
  Age: 70 Year
  Sex: Female
  Weight: 72.5755 kg

DRUGS (9)
  1. LYRICA [Suspect]
     Indication: POST HERPETIC NEURALGIA
     Dosage: 150 MG (50 MG, 3 IN 1 D)
     Dates: start: 20051008, end: 20051101
  2. LIPITOR [Concomitant]
  3. PAXIL [Concomitant]
  4. DURAGESIC-100 [Concomitant]
  5. PREMARIN [Concomitant]
  6. TYLENOL [Concomitant]
  7. VITAMINS (VITAMINS) [Concomitant]
  8. OXYCODONE (OXYCODONE) [Concomitant]
  9. LASIX [Concomitant]

REACTIONS (9)
  - ASTHENIA [None]
  - DROOLING [None]
  - DYSKINESIA [None]
  - FATIGUE [None]
  - OEDEMA PERIPHERAL [None]
  - PAIN IN EXTREMITY [None]
  - SLEEP TALKING [None]
  - SLEEP WALKING [None]
  - SOMNOLENCE [None]
